FAERS Safety Report 6527767-0 (Version None)
Quarter: 2010Q1

REPORT INFORMATION
  Report Type: 
  Country: None (occurrence: None)
  Receive Date: 20100106
  Receipt Date: 20091225
  Transmission Date: 20100710
  Serious: Yes (Life-Threatening, Hospitalization)
  Sender: FDA-Public Use
  Company Number: RU-BAYER-200941710GPV

PATIENT
  Age: 52 Year
  Sex: Male

DRUGS (1)
  1. BETAFERON [Suspect]
     Indication: MULTIPLE SCLEROSIS
     Route: 058
     Dates: start: 20080819, end: 20091029

REACTIONS (19)
  - ABDOMINAL DISTENSION [None]
  - ANAEMIA [None]
  - ASCITES [None]
  - ASTHENIA [None]
  - CHOLECYSTITIS CHRONIC [None]
  - DECREASED APPETITE [None]
  - DISCOMFORT [None]
  - EROSIVE DUODENITIS [None]
  - HEPATIC CIRRHOSIS [None]
  - HEPATIC ENCEPHALOPATHY [None]
  - JAUNDICE [None]
  - LEUKOPENIA [None]
  - OEDEMA PERIPHERAL [None]
  - OESOPHAGEAL HAEMORRHAGE [None]
  - SPLENOMEGALY [None]
  - SYNCOPE [None]
  - THIRST [None]
  - THROMBOCYTOPENIA [None]
  - VARICES OESOPHAGEAL [None]
